FAERS Safety Report 10208109 (Version 3)
Quarter: 2014Q2

REPORT INFORMATION
  Report Type: Spontaneous
  Country: IT (occurrence: IT)
  Receive Date: 20140530
  Receipt Date: 20140620
  Transmission Date: 20141212
  Serious: Yes (Other)
  Sender: FDA-Public Use
  Company Number: IT-THROMBOGENICS NV-JET-2014-192

PATIENT
  Age: 65 Year
  Sex: Female

DRUGS (2)
  1. JETREA [Suspect]
     Indication: VITREOUS ADHESIONS
     Dosage: 0.125 MG, ONE TIME DOSE
     Route: 031
  2. JETREA [Suspect]
     Indication: MACULAR HOLE

REACTIONS (5)
  - Iridocyclitis [Unknown]
  - Eye pain [Unknown]
  - Corneal disorder [Recovered/Resolved]
  - Conjunctival hyperaemia [Unknown]
  - Miosis [Unknown]
